FAERS Safety Report 17949470 (Version 1)
Quarter: 2020Q2

REPORT INFORMATION
  Report Type: Spontaneous
  Country: ES (occurrence: ES)
  Receive Date: 20200625
  Receipt Date: 20200625
  Transmission Date: 20200714
  Serious: Yes (Other)
  Sender: FDA-Public Use
  Company Number: NVSC2020ES177480

PATIENT
  Age: 56 Year
  Sex: Male

DRUGS (3)
  1. ENOXAPARINA [Suspect]
     Active Substance: ENOXAPARIN
     Indication: THROMBOSIS PROPHYLAXIS
     Dosage: 40 MG, Q24H
     Route: 058
     Dates: start: 20200406, end: 20200414
  2. HYDROXYCHLOROQUINE [Suspect]
     Active Substance: HYDROXYCHLOROQUINE
     Indication: CORONAVIRUS INFECTION
     Dosage: 400 MG, Q24H
     Route: 048
     Dates: start: 20200405, end: 20200410
  3. SULPIRIDA [Suspect]
     Active Substance: SULPIRIDE
     Indication: CONFUSIONAL STATE
     Dosage: 50 MG, Q8H
     Route: 048
     Dates: start: 20200410, end: 20200413

REACTIONS (1)
  - Hepatitis [Recovered/Resolved]

NARRATIVE: CASE EVENT DATE: 20200411
